FAERS Safety Report 8882782 (Version 1)
Quarter: 2012Q4

REPORT INFORMATION
  Report Type: 
  Country: US (occurrence: US)
  Receive Date: 20121102
  Receipt Date: 20121102
  Transmission Date: 20130627
  Serious: No
  Sender: FDA-Public Use
  Company Number: US-ASTRAZENECA-2011SE66893

PATIENT
  Age: 58 Year
  Sex: Female
  Weight: 86.2 kg

DRUGS (7)
  1. CRESTOR [Suspect]
     Indication: BLOOD CHOLESTEROL ABNORMAL
     Route: 048
  2. CRESTOR [Suspect]
     Indication: BLOOD CHOLESTEROL ABNORMAL
     Route: 048
  3. NIFEDIAC [Concomitant]
     Indication: BLOOD PRESSURE
  4. ENALAPRIL MALEATE [Concomitant]
     Indication: BLOOD PRESSURE
  5. ASPIRIN REGULAR COATED [Concomitant]
     Indication: CEREBROVASCULAR ACCIDENT
  6. OMEGA 3 OTC [Concomitant]
  7. CITRACAL CALCIUM PLUS D [Concomitant]

REACTIONS (6)
  - Blood cholesterol decreased [Unknown]
  - Pain [Unknown]
  - Headache [Unknown]
  - Fatigue [Unknown]
  - Wrong technique in drug usage process [Unknown]
  - Drug dose omission [Unknown]
